FAERS Safety Report 10250934 (Version 1)
Quarter: 2014Q2

REPORT INFORMATION
  Report Type: Spontaneous
  Country: DE (occurrence: DE)
  Receive Date: 20140620
  Receipt Date: 20140620
  Transmission Date: 20141212
  Serious: Yes (Death, Hospitalization, Other)
  Sender: FDA-Public Use
  Company Number: DE-ELI_LILLY_AND_COMPANY-DE201405008288

PATIENT
  Sex: Male
  Weight: 70.8 kg

DRUGS (11)
  1. ALIMTA [Suspect]
     Indication: PLEURAL MESOTHELIOMA MALIGNANT
     Dosage: 500 MG/M2, CYCLICAL
     Dates: end: 20140409
  2. ALIMTA [Suspect]
     Dosage: 400 MG/M2, UNKNOWN
     Route: 042
     Dates: start: 20140411, end: 20140411
  3. CISPLATIN [Concomitant]
     Dosage: 40 MG/M2, UNKNOWN
  4. NOVALGIN [Concomitant]
     Dosage: 40 GTT, UNK
  5. TARGIN [Concomitant]
  6. MOVICOL [Concomitant]
  7. CIPRAMIL [Concomitant]
     Dosage: 10 MG, QD
  8. DELIX [Concomitant]
     Dosage: 5 MG, QD
  9. FOLSAN [Concomitant]
     Dosage: 0.4 MG, QD
  10. PANTOZOL [Concomitant]
     Dosage: 40 MG, QD
  11. IRENAT [Concomitant]
     Dosage: 10 GTT, TID

REACTIONS (17)
  - Pancytopenia [Fatal]
  - General physical health deterioration [Unknown]
  - Pain [Unknown]
  - Anaemia [Unknown]
  - Stomatitis [Not Recovered/Not Resolved]
  - Drug eruption [Not Recovered/Not Resolved]
  - Drug hypersensitivity [Not Recovered/Not Resolved]
  - Cachexia [Unknown]
  - Decreased appetite [Unknown]
  - Asthenia [Unknown]
  - C-reactive protein increased [Unknown]
  - Blood pressure increased [Unknown]
  - Oedema peripheral [Unknown]
  - Mucosal inflammation [Unknown]
  - Diarrhoea [Unknown]
  - Lactobacillus infection [Unknown]
  - Gastroenteritis [Unknown]
